FAERS Safety Report 5331703-2 (Version None)
Quarter: 2007Q2

REPORT INFORMATION
  Report Type: 
  Country: None (occurrence: None)
  Receive Date: 20070516
  Receipt Date: 20070507
  Transmission Date: 20071010
  Serious: Yes (Death)
  Sender: FDA-Public Use
  Company Number: 154786USA

PATIENT
  Age: 63 Year
  Sex: Male

DRUGS (1)
  1. CLOZAPINE [Suspect]
     Indication: SCHIZOPHRENIA
     Dosage: 450 MG, ORAL
     Route: 048
     Dates: start: 20060801, end: 20070312

REACTIONS (3)
  - CARDIO-RESPIRATORY ARREST [None]
  - RESPIRATORY FAILURE [None]
  - SEPSIS [None]
